FAERS Safety Report 9663348 (Version 1)
Quarter: 2013Q4

REPORT INFORMATION
  Report Type: Spontaneous
  Country: US (occurrence: US)
  Receive Date: 20131101
  Receipt Date: 20131101
  Transmission Date: 20140711
  Serious: Yes (Other)
  Sender: FDA-Public Use
  Company Number: US-BRISTOL-MYERS SQUIBB COMPANY-19675966

PATIENT
  Sex: 0

DRUGS (3)
  1. ABILIFY [Suspect]
  2. CLOZAPINE [Concomitant]
  3. LITHIUM [Concomitant]

REACTIONS (1)
  - Mania [Unknown]
